FAERS Safety Report 19804560 (Version 1)
Quarter: 2021Q3

REPORT INFORMATION
  Report Type: Spontaneous
  Country: CN (occurrence: CN)
  Receive Date: 20210908
  Receipt Date: 20210908
  Transmission Date: 20211014
  Serious: Yes (Other)
  Sender: FDA-Public Use
  Company Number: CN-PFIZER INC-202101119498

PATIENT
  Age: 57 Year
  Sex: Female
  Weight: 55 kg

DRUGS (1)
  1. METHYLPREDNISOLONE SODIUM SUCCINATE. [Suspect]
     Active Substance: METHYLPREDNISOLONE SODIUM SUCCINATE
     Indication: MYELOPATHY
     Dosage: 1 G, 1X/DAY
     Route: 041
     Dates: start: 20210623, end: 20210628

REACTIONS (7)
  - Hyperphagia [Recovering/Resolving]
  - Hyperhidrosis [Recovering/Resolving]
  - Off label use [Recovering/Resolving]
  - Liver injury [Recovering/Resolving]
  - Increased appetite [Recovering/Resolving]
  - Abdominal distension [Recovering/Resolving]
  - Feeling hot [Recovering/Resolving]

NARRATIVE: CASE EVENT DATE: 20210623
